FAERS Safety Report 25232481 (Version 5)
Quarter: 2025Q3

REPORT INFORMATION
  Report Type: Report from Study
  Country: US (occurrence: US)
  Receive Date: 20250423
  Receipt Date: 20250706
  Transmission Date: 20251021
  Serious: Yes (Other)
  Sender: ABBVIE
  Company Number: US-ABBVIE-6238981

PATIENT
  Age: 56 Year
  Sex: Female
  Weight: 107 kg

DRUGS (5)
  1. RINVOQ [Suspect]
     Active Substance: UPADACITINIB
     Indication: Dermatitis atopic
     Dosage: FORM STRENGTH: 15 MILLIGRAM
     Route: 048
     Dates: start: 202412
  2. HYDROCHLOROTHIAZIDE [Concomitant]
     Active Substance: HYDROCHLOROTHIAZIDE
     Indication: Oedema
  3. MOBIC [Concomitant]
     Active Substance: MELOXICAM
     Indication: Arthritis
  4. ROBAXIN [Concomitant]
     Active Substance: METHOCARBAMOL
     Indication: Pain
  5. LYRICA [Concomitant]
     Active Substance: PREGABALIN
     Indication: Pain

REACTIONS (9)
  - Limb operation [Unknown]
  - Acne [Recovering/Resolving]
  - Skin lesion [Not Recovered/Not Resolved]
  - Dermatitis atopic [Recovering/Resolving]
  - Hemiparesis [Unknown]
  - Scab [Not Recovered/Not Resolved]
  - Muscle strain [Recovering/Resolving]
  - Contusion [Recovering/Resolving]
  - Muscle spasms [Not Recovered/Not Resolved]

NARRATIVE: CASE EVENT DATE: 20250101
